FAERS Safety Report 4717414-2 (Version None)
Quarter: 2005Q3

REPORT INFORMATION
  Report Type: 
  Country: None (occurrence: None)
  Receive Date: 20050719
  Receipt Date: 20050617
  Transmission Date: 20060218
  Serious: Yes (Hospitalization)
  Sender: FDA-Public Use
  Company Number: FR-MERCK-0506FRA00074

PATIENT
  Age: 4 Year
  Sex: Male

DRUGS (14)
  1. ALBUTEROL [Concomitant]
     Route: 055
     Dates: start: 20010101
  2. BUDESONIDE [Concomitant]
     Route: 055
     Dates: start: 20010101
  3. IPRATROPIUM BROMIDE [Concomitant]
     Route: 065
     Dates: start: 20010101
  4. SINGULAIR [Suspect]
     Indication: ASTHMA
     Route: 048
     Dates: start: 20050501, end: 20050519
  5. SINGULAIR [Suspect]
     Route: 048
     Dates: start: 20050524, end: 20050527
  6. ASPIRIN LYSINE [Concomitant]
     Route: 048
     Dates: start: 20010101, end: 20050519
  7. FUROSEMIDE [Concomitant]
     Route: 065
     Dates: start: 20010101, end: 20050527
  8. AMOXICILLIN [Concomitant]
     Indication: LUNG DISORDER
     Route: 048
     Dates: start: 20050510, end: 20050519
  9. CIPROFLOXACIN HYDROCHLORIDE [Concomitant]
     Indication: LUNG DISORDER
     Route: 048
     Dates: start: 20050510, end: 20050519
  10. SOMATROPIN [Concomitant]
     Indication: GROWTH RETARDATION
     Route: 065
     Dates: start: 20050101, end: 20050518
  11. CAPTOPRIL [Concomitant]
     Route: 065
     Dates: start: 20020101
  12. DOMPERIDONE [Concomitant]
     Route: 048
     Dates: end: 20050519
  13. POLYETHYLENE GLYCOL 4000 [Concomitant]
     Route: 065
     Dates: start: 20041201, end: 20050501
  14. POLYETHYLENE GLYCOL 4000 [Concomitant]
     Route: 065
     Dates: start: 20050525, end: 20050527

REACTIONS (1)
  - THROMBOCYTOPENIA [None]
